FAERS Safety Report 4786537-4 (Version None)
Quarter: 2005Q3

REPORT INFORMATION
  Report Type: 
  Country: None (occurrence: None)
  Receive Date: 20050927
  Receipt Date: 20050708
  Transmission Date: 20060218
  Serious: No
  Sender: FDA-Public Use
  Company Number: USA0507102318

PATIENT
  Age: 11 Year
  Sex: Male

DRUGS (3)
  1. RISPERDAL [Concomitant]
  2. SEROQUEL [Concomitant]
  3. STRATTERA [Suspect]
     Dosage: 10 MG DAY

REACTIONS (3)
  - DYSKINESIA [None]
  - NERVOUSNESS [None]
  - TIC [None]
